FAERS Safety Report 24934021 (Version 2)
Quarter: 2025Q1

REPORT INFORMATION
  Report Type: Spontaneous
  Country: BE (occurrence: BE)
  Receive Date: 20250206
  Receipt Date: 20250331
  Transmission Date: 20250409
  Serious: Yes (Other)
  Sender: AMGEN
  Company Number: BE-AMGEN-BELSP2025019448

PATIENT
  Age: 66 Year
  Sex: Female

DRUGS (1)
  1. PROLIA [Suspect]
     Active Substance: DENOSUMAB
     Indication: Product used for unknown indication
     Route: 065

REACTIONS (3)
  - Jaw fracture [Unknown]
  - Jaw disorder [Unknown]
  - Bone density decreased [Unknown]

NARRATIVE: CASE EVENT DATE: 20250101
